FAERS Safety Report 7487655-2 (Version None)
Quarter: 2011Q2

REPORT INFORMATION
  Report Type: 
  Country: None (occurrence: None)
  Receive Date: 20110511
  Receipt Date: 20110427
  Transmission Date: 20111010
  Serious: Yes (Other)
  Sender: FDA-Public Use
  Company Number: 2011AP000858

PATIENT
  Age: 13 Week

DRUGS (1)
  1. LAMOTRIGINE [Suspect]
     Dosage: 250 MG;TRPL;QD
     Route: 064

REACTIONS (2)
  - EXOMPHALOS [None]
  - MATERNAL DRUGS AFFECTING FOETUS [None]
